FAERS Safety Report 16137598 (Version 1)
Quarter: 2019Q2

REPORT INFORMATION
  Report Type: Report from Study
  Country: US (occurrence: US)
  Receive Date: 20190401
  Receipt Date: 20190401
  Transmission Date: 20190711
  Serious: Yes (Other)
  Sender: FDA-Public Use
  Company Number: US-GLAXOSMITHKLINE-US2019GSK046707

PATIENT
  Sex: Female

DRUGS (1)
  1. MEPOLIZUMAB [Suspect]
     Active Substance: MEPOLIZUMAB
     Indication: ASTHMA

REACTIONS (5)
  - Gastrectomy [Unknown]
  - Migraine [Unknown]
  - Gastroenteritis eosinophilic [Unknown]
  - Headache [Unknown]
  - Eosinophilic oesophagitis [Unknown]
